FAERS Safety Report 17924002 (Version 1)
Quarter: 2020Q2

REPORT INFORMATION
  Report Type: Spontaneous
  Country: US (occurrence: US)
  Receive Date: 20200622
  Receipt Date: 20200622
  Transmission Date: 20200714
  Serious: Yes (Other)
  Sender: FDA-Public Use
  Company Number: US-AMGEN-USASP2020096141

PATIENT

DRUGS (1)
  1. PROLIA [Suspect]
     Active Substance: DENOSUMAB
     Indication: PRODUCT USED FOR UNKNOWN INDICATION
     Dosage: UNK
     Route: 065

REACTIONS (9)
  - Full blood count decreased [Unknown]
  - Hip fracture [Unknown]
  - Grip strength decreased [Unknown]
  - Fatigue [Unknown]
  - Sluggishness [Unknown]
  - Anaemia [Unknown]
  - Neoplasm malignant [Unknown]
  - Musculoskeletal stiffness [Unknown]
  - Diarrhoea [Unknown]
